FAERS Safety Report 21846032 (Version 3)
Quarter: 2023Q1

REPORT INFORMATION
  Report Type: Report from Study
  Country: AU (occurrence: AU)
  Receive Date: 20230111
  Receipt Date: 20230220
  Transmission Date: 20230418
  Serious: Yes (Hospitalization, Other)
  Sender: FDA-Public Use
  Company Number: AU-ABBVIE-4265180

PATIENT
  Sex: Female

DRUGS (2)
  1. CARBIDOPA\LEVODOPA [Suspect]
     Active Substance: CARBIDOPA\LEVODOPA
     Indication: Parkinson^s disease
     Dosage: DURATION TEXT: 16 HOURS
     Route: 050
     Dates: start: 20220331
  2. CARBIDOPA\LEVODOPA [Suspect]
     Active Substance: CARBIDOPA\LEVODOPA

REACTIONS (8)
  - Small intestinal obstruction [Unknown]
  - Intestinal perforation [Unknown]
  - Incorrect route of product administration [Unknown]
  - Bezoar [Unknown]
  - Small intestine ulcer [Unknown]
  - Device issue [Unknown]
  - Malaise [Unknown]
  - Intestinal resection [Unknown]
